FAERS Safety Report 9100970 (Version 1)
Quarter: 2013Q1

REPORT INFORMATION
  Report Type: Spontaneous
  Country: US (occurrence: None)
  Receive Date: 20130220
  Receipt Date: 20130220
  Transmission Date: 20140127
  Serious: Yes (Hospitalization)
  Sender: FDA-Public Use
  Company Number: None

PATIENT
  Age: 18 Year
  Sex: Male
  Weight: 70.6 kg

DRUGS (5)
  1. AZACITIDINE [Suspect]
     Indication: ACUTE MYELOID LEUKAEMIA
     Dosage: 72 MG  DAILY 5DYAS028DAYS  SQ?12/13/2012  --  01/14/2013
     Route: 058
     Dates: start: 20121213, end: 20130114
  2. VALPROIC ACID [Suspect]
     Indication: ACUTE MYELOID LEUKAEMIA
     Dosage: 500MG  AM  +  750MG  PM  BID  PO?12/13/2012  --  02/15/2013
     Route: 048
     Dates: start: 20121213, end: 20130215
  3. FOLIC ACID [Concomitant]
  4. LEVOFLOXACIN [Concomitant]
  5. LORAZEPAM [Concomitant]

REACTIONS (3)
  - Corynebacterium test positive [None]
  - Staphylococcus test positive [None]
  - Device related infection [None]
